FAERS Safety Report 15453184 (Version 1)
Quarter: 2018Q4

REPORT INFORMATION
  Report Type: Spontaneous
  Country: US (occurrence: US)
  Receive Date: 20181001
  Receipt Date: 20181001
  Transmission Date: 20190204
  Serious: No
  Sender: FDA-Public Use
  Company Number: US-ALLERGAN-1816401US

PATIENT
  Sex: Female

DRUGS (2)
  1. RECTIV [Suspect]
     Active Substance: NITROGLYCERIN
     Dosage: UNK, QD
     Route: 061
  2. RECTIV [Suspect]
     Active Substance: NITROGLYCERIN
     Indication: ANAL SKIN TAGS
     Dosage: UNK UNK, BID
     Route: 061
     Dates: start: 20180307

REACTIONS (5)
  - Drug ineffective for unapproved indication [Unknown]
  - Incorrect route of product administration [Unknown]
  - Inappropriate schedule of product administration [Unknown]
  - Headache [Recovered/Resolved]
  - Off label use [Unknown]
